FAERS Safety Report 8569027 (Version 2)
Quarter: 2013Q2

REPORT INFORMATION
  Report Type: Report from Study
  Country: MX (occurrence: MX)
  Receive Date: 20120518
  Receipt Date: 20130429
  Transmission Date: 20140414
  Serious: Yes (Death)
  Sender: FDA-Public Use
  Company Number: PHHY2012MX042460

PATIENT
  Age: 54 Year
  Sex: Male

DRUGS (1)
  1. CO-DIOVAN [Suspect]
     Indication: HYPERTENSION
     Dosage: 1 DF (160 MG VALSARTAN AND 12.5 MG HYDROCHLOROTHIAZIDE), PER DAY

REACTIONS (1)
  - Death [Fatal]
